FAERS Safety Report 18025761 (Version 1)
Quarter: 2020Q3

REPORT INFORMATION
  Report Type: Spontaneous
  Country: CN (occurrence: CN)
  Receive Date: 20200715
  Receipt Date: 20200715
  Transmission Date: 20201103
  Serious: Yes (Other)
  Sender: FDA-Public Use
  Company Number: CN-US-PROVELL PHARMACEUTICALS LLC-E2B_90078850

PATIENT
  Age: 45 Year
  Sex: Female

DRUGS (3)
  1. EUTHYROX [Suspect]
     Active Substance: LEVOTHYROXINE SODIUM
     Indication: HYPOTHYROIDISM
  2. EUTHYROX [Suspect]
     Active Substance: LEVOTHYROXINE SODIUM
     Dosage: EUTHYROX NEW FORMULATION
     Dates: start: 20200712
  3. EUTHYROX [Suspect]
     Active Substance: LEVOTHYROXINE SODIUM
     Dosage: 1 TABLET IEN THE MORNING AND 0.5 TABLET EVENING

REACTIONS (5)
  - Underdose [Unknown]
  - Product dose omission issue [Unknown]
  - Swelling of eyelid [Unknown]
  - Product packaging issue [Unknown]
  - Hypothyroidism [Unknown]

NARRATIVE: CASE EVENT DATE: 202007
